FAERS Safety Report 6214653-9 (Version None)
Quarter: 2009Q2

REPORT INFORMATION
  Report Type: 
  Country: None (occurrence: None)
  Receive Date: 20090604
  Receipt Date: 20090525
  Transmission Date: 20091009
  Serious: Yes (Other)
  Sender: FDA-Public Use
  Company Number: FR-PFIZER INC-2009217499

PATIENT
  Age: 15 Year

DRUGS (6)
  1. SOLU-MEDROL [Suspect]
     Indication: RENAL TRANSPLANT
     Dosage: 60 MG, 1X/DAY
     Route: 042
     Dates: start: 20071028
  2. PROGRAF [Suspect]
     Indication: RENAL TRANSPLANT
     Dosage: 6 MG, 1X/DAY
     Route: 048
     Dates: start: 20071031, end: 20071101
  3. ZENAPAX [Suspect]
     Indication: RENAL TRANSPLANT
     Dosage: 50 MG, 1X/DAY
     Route: 042
     Dates: start: 20071028, end: 20071029
  4. CELLCEPT [Suspect]
     Indication: RENAL TRANSPLANT
     Dosage: 2 G, 1X/DAY
     Route: 048
     Dates: start: 20071028
  5. ZINNAT [Suspect]
     Indication: URINARY TRACT INFECTION
     Dosage: UNK
     Route: 042
     Dates: start: 20071028
  6. NALBUPHINE HYDROCHLORIDE [Suspect]
     Indication: PAIN
     Dosage: UNK
     Route: 042
     Dates: start: 20071028

REACTIONS (4)
  - HALLUCINATION [None]
  - HEADACHE [None]
  - HYPERTENSION [None]
  - VISION BLURRED [None]
